FAERS Safety Report 7413037-5 (Version None)
Quarter: 2011Q2

REPORT INFORMATION
  Report Type: 
  Country: None (occurrence: None)
  Receive Date: 20110408
  Receipt Date: 20110408
  Transmission Date: 20111010
  Serious: Yes (Other)
  Sender: FDA-Public Use
  Company Number: None

PATIENT
  Age: 47 Year
  Sex: Female
  Weight: 45.3597 kg

DRUGS (1)
  1. FLUOROURACIL [Suspect]
     Indication: ACTINIC KERATOSIS
     Dosage: COVER 3 CM AREA OF SKIN TWICE DAILY CUTANEOUS
     Route: 003
     Dates: start: 20110214, end: 20110307

REACTIONS (2)
  - APPLICATION SITE NECROSIS [None]
  - CHEMICAL INJURY [None]
